FAERS Safety Report 5900385-0 (Version None)
Quarter: 2008Q3

REPORT INFORMATION
  Report Type: 
  Country: None (occurrence: None)
  Receive Date: 20080926
  Receipt Date: 20080925
  Transmission Date: 20090109
  Serious: Yes (Death)
  Sender: FDA-Public Use
  Company Number: US-ASTRAZENECA-2008UW20308

PATIENT
  Sex: Male

DRUGS (1)
  1. CASODEX [Suspect]
     Indication: BONE NEOPLASM MALIGNANT
     Route: 048

REACTIONS (1)
  - BONE NEOPLASM MALIGNANT [None]
